FAERS Safety Report 8065162-6 (Version None)
Quarter: 2012Q1

REPORT INFORMATION
  Report Type: 
  Country: None (occurrence: None)
  Receive Date: 20120117
  Receipt Date: 20120110
  Transmission Date: 20120608
  Serious: Yes (Death)
  Sender: FDA-Public Use
  Company Number: 1000026979

PATIENT
  Age: 49 Year
  Sex: Female

DRUGS (6)
  1. DILTIAZEM HYDROCHLORIDE [Suspect]
  2. HYDROCHLOROTHIAZIDE [Suspect]
  3. VALPROIC ACID [Suspect]
  4. GABAPENTIN [Suspect]
  5. WARFARIN SODIUM [Suspect]
  6. LISINOPRIL [Suspect]

REACTIONS (3)
  - COMPLETED SUICIDE [None]
  - RESPIRATORY ARREST [None]
  - CARDIAC ARREST [None]
